FAERS Safety Report 6112192 (Version 7)
Quarter: 2014Q3

REPORT INFORMATION
  Report Type: Spontaneous
  Country: US (occurrence: US)
  Receive Date: 20060822
  Receipt Date: 20140808
  Transmission Date: 20150326
  Serious: Yes (Hospitalization)
  Sender: FDA-Public Use
  Company Number: US-JNJFOC-20060803555

PATIENT
  Age: 75 Year
  Sex: Female
  Weight: 83.92 kg

DRUGS (10)
  1. ALLEGRA [Concomitant]
     Active Substance: FEXOFENADINE HYDROCHLORIDE
     Route: 065
  2. REMICADE [Suspect]
     Active Substance: INFLIXIMAB
     Indication: COLITIS ULCERATIVE
     Dosage: 2 DOSES ON UNSPECIFIED DATES
     Route: 042
     Dates: start: 20060516, end: 20060710
  3. ESTRADIOL. [Concomitant]
     Active Substance: ESTRADIOL
     Route: 065
  4. ASACOL [Concomitant]
     Active Substance: MESALAMINE
  5. VALIUM [Concomitant]
     Active Substance: DIAZEPAM
     Dosage: HALF TO ONE AS NEEDED
     Route: 065
  6. BENADRYL [Suspect]
     Active Substance: DIPHENHYDRAMINE HYDROCHLORIDE
     Indication: PRODUCT USED FOR UNKNOWN INDICATION
     Route: 065
     Dates: start: 2006
  7. SYNTHROID [Concomitant]
     Active Substance: LEVOTHYROXINE SODIUM
     Route: 065
  8. PREDNISONE. [Concomitant]
     Active Substance: PREDNISONE
  9. COZAAR [Concomitant]
     Active Substance: LOSARTAN POTASSIUM
     Dosage: HALF IN THE NIGHT
     Route: 065
  10. REQUIP [Concomitant]
     Active Substance: ROPINIROLE HYDROCHLORIDE
     Dosage: AT NIGHT
     Route: 065

REACTIONS (3)
  - Infusion related reaction [Recovered/Resolved]
  - Rhabdomyolysis [Recovered/Resolved]
  - Petechiae [Unknown]

NARRATIVE: CASE EVENT DATE: 20060710
